FAERS Safety Report 6746592-9 (Version None)
Quarter: 2010Q2

REPORT INFORMATION
  Report Type: 
  Country: None (occurrence: None)
  Receive Date: 20100528
  Receipt Date: 20100209
  Transmission Date: 20101027
  Serious: No
  Sender: FDA-Public Use
  Company Number: US-ASTRAZENECA-2010SE07280

PATIENT
  Sex: Female

DRUGS (4)
  1. PRILOSEC OTC [Suspect]
     Route: 048
     Dates: start: 20100209, end: 20100209
  2. ASPIRIN [Suspect]
     Dosage: UNKNOWN
  3. XANAX [Concomitant]
     Indication: ANXIETY
     Dosage: UNKNOWN
  4. DIOVAN [Concomitant]
     Dosage: UNKNOWN

REACTIONS (3)
  - DIARRHOEA [None]
  - DYSPNOEA [None]
  - GENERALISED ERYTHEMA [None]
